FAERS Safety Report 5409958-5 (Version None)
Quarter: 2007Q3

REPORT INFORMATION
  Report Type: 
  Country: None (occurrence: None)
  Receive Date: 20070713
  Receipt Date: 20070425
  Transmission Date: 20080115
  Serious: No
  Sender: FDA-Public Use
  Company Number: 2007SP001516

PATIENT
  Age: 77 Year
  Sex: Male
  Weight: 79.3795 kg

DRUGS (4)
  1. LUNESTA [Suspect]
     Indication: INSOMNIA
     Dosage: 3 MG;HS;ORAL, 2 MG;1X;ORAL
     Route: 048
     Dates: start: 20070421, end: 20070422
  2. LUNESTA [Suspect]
     Indication: INSOMNIA
     Dosage: 3 MG;HS;ORAL, 2 MG;1X;ORAL
     Route: 048
     Dates: start: 20070423, end: 20070423
  3. METOPROLOL SUCCINATE [Concomitant]
  4. ZESTRIL [Concomitant]

REACTIONS (1)
  - ASTHENIA [None]
